FAERS Safety Report 5904376-5 (Version None)
Quarter: 2008Q4

REPORT INFORMATION
  Report Type: 
  Country: None (occurrence: None)
  Receive Date: 20081001
  Receipt Date: 20080924
  Transmission Date: 20090506
  Serious: Yes (Hospitalization)
  Sender: FDA-Public Use
  Company Number: PHEH2008US08409

PATIENT
  Sex: Female
  Weight: 80.272 kg

DRUGS (11)
  1. EXJADE [Suspect]
     Indication: IRON OVERLOAD
     Dosage: 500 MG, TID
     Route: 048
     Dates: start: 20080318, end: 20080427
  2. ASPIRIN [Concomitant]
  3. LEVOTHYROXINE SODIUM [Concomitant]
  4. PREVACID [Concomitant]
  5. CELEBREX [Concomitant]
  6. GLIPIZIDE [Concomitant]
  7. CLONIDINE [Concomitant]
  8. BENICAR [Concomitant]
  9. COREG [Concomitant]
  10. DOXEPIN HCL [Concomitant]
  11. PROCRIT [Concomitant]

REACTIONS (29)
  - ALANINE AMINOTRANSFERASE INCREASED [None]
  - ASPARTATE AMINOTRANSFERASE INCREASED [None]
  - ASTHENIA [None]
  - BLADDER MASS [None]
  - BLOOD ALKALINE PHOSPHATASE INCREASED [None]
  - BLOOD BILIRUBIN INCREASED [None]
  - BLOOD CREATININE INCREASED [None]
  - BLOOD IRON INCREASED [None]
  - BLOOD SODIUM DECREASED [None]
  - BLOOD UREA INCREASED [None]
  - BLOOD URINE PRESENT [None]
  - DEHYDRATION [None]
  - DIARRHOEA [None]
  - FATIGUE [None]
  - GLOMERULAR FILTRATION RATE DECREASED [None]
  - HEPATITIS [None]
  - HYDRONEPHROSIS [None]
  - HYDROURETER [None]
  - IRON BINDING CAPACITY TOTAL ABNORMAL [None]
  - JAUNDICE [None]
  - LIVER FUNCTION TEST ABNORMAL [None]
  - PLEURAL EFFUSION [None]
  - PROTEIN URINE PRESENT [None]
  - PYELOCALIECTASIS [None]
  - RENAL IMPAIRMENT [None]
  - SERUM FERRITIN INCREASED [None]
  - URETERIC DILATATION [None]
  - VIRAL INFECTION [None]
  - VOMITING [None]
